FAERS Safety Report 22199637 (Version 1)
Quarter: 2023Q2

REPORT INFORMATION
  Report Type: Report from Study
  Country: CA (occurrence: CA)
  Receive Date: 20230412
  Receipt Date: 20230412
  Transmission Date: 20230722
  Serious: Yes (Other)
  Sender: FDA-Public Use
  Company Number: CA-002147023-NVSC2023CA048154

PATIENT
  Sex: Male

DRUGS (2)
  1. PRAVASTATIN [Suspect]
     Active Substance: PRAVASTATIN
     Indication: Arteriosclerosis
     Dosage: UNK
     Route: 058
  2. EZETIMIBE [Suspect]
     Active Substance: EZETIMIBE
     Indication: Arteriosclerosis
     Dosage: UNK
     Route: 065

REACTIONS (4)
  - Blood triglycerides increased [Unknown]
  - Non-high-density lipoprotein cholesterol increased [Unknown]
  - Apolipoprotein increased [Unknown]
  - Myalgia [Unknown]
